FAERS Safety Report 8072452-X (Version None)
Quarter: 2012Q1

REPORT INFORMATION
  Report Type: 
  Country: None (occurrence: None)
  Receive Date: 20120124
  Receipt Date: 20120124
  Transmission Date: 20120608
  Serious: No
  Sender: FDA-Public Use
  Company Number: None

PATIENT
  Age: 18 Year
  Sex: Male

DRUGS (2)
  1. DIANEAL [Suspect]
     Dates: start: 20110101
  2. EXTRANEAL [Suspect]

REACTIONS (8)
  - HYPERHIDROSIS [None]
  - FALSE POSITIVE INVESTIGATION RESULT [None]
  - DEVICE INTERACTION [None]
  - MEDICATION ERROR [None]
  - DIZZINESS [None]
  - SPEECH DISORDER [None]
  - BLOOD GLUCOSE DECREASED [None]
  - BLOOD GLUCOSE INCREASED [None]
